FAERS Safety Report 6721960-X (Version None)
Quarter: 2010Q2

REPORT INFORMATION
  Report Type: 
  Country: None (occurrence: None)
  Receive Date: 20100512
  Receipt Date: 20100506
  Transmission Date: 20101027
  Serious: Yes (Death, Hospitalization)
  Sender: FDA-Public Use
  Company Number: A0858553A

PATIENT
  Age: 56 Year
  Sex: Female

DRUGS (12)
  1. ADVAIR DISKUS 100/50 [Suspect]
     Indication: CHRONIC OBSTRUCTIVE PULMONARY DISEASE
     Dosage: 1PUFF TWICE PER DAY
     Route: 055
  2. VENTOLIN [Concomitant]
  3. SPIRIVA [Concomitant]
  4. GLUCOTROL [Concomitant]
  5. GLIPIZIDE [Concomitant]
  6. ASPIRIN [Concomitant]
  7. ENALAPRIL MALEATE [Concomitant]
  8. DIGOXIN [Concomitant]
  9. POTASSIUM [Concomitant]
  10. VITAMIN D [Concomitant]
  11. CALCIUM [Concomitant]
  12. ECHINACEA [Concomitant]

REACTIONS (2)
  - DEATH [None]
  - DYSPNOEA [None]
